FAERS Safety Report 6215945-X (Version None)
Quarter: 2009Q2

REPORT INFORMATION
  Report Type: 
  Country: None (occurrence: None)
  Receive Date: 20090603
  Receipt Date: 20090527
  Transmission Date: 20091009
  Serious: Yes (Other)
  Sender: FDA-Public Use
  Company Number: TPG2009A00534

PATIENT
  Age: 74 Year
  Sex: Female

DRUGS (1)
  1. ACTOS [Suspect]
     Indication: DRUG USE FOR UNKNOWN INDICATION
     Dosage: 30 MG (30 MG, 1 IN 1D), PER ORAL
     Route: 048
     Dates: start: 20060101

REACTIONS (3)
  - FALL [None]
  - HAND FRACTURE [None]
  - UPPER LIMB FRACTURE [None]
